FAERS Safety Report 4646715-1 (Version None)
Quarter: 2005Q2

REPORT INFORMATION
  Report Type: 
  Country: None (occurrence: None)
  Receive Date: 20050427
  Receipt Date: 20050425
  Transmission Date: 20051028
  Serious: Yes (Other)
  Sender: FDA-Public Use
  Company Number: JPKYO-L-20050001

PATIENT
  Age: 71 Year
  Sex: Female

DRUGS (1)
  1. NAVELBINE [Suspect]
     Indication: BREAST CANCER
     Route: 042
     Dates: start: 20031224

REACTIONS (1)
  - ILEUS [None]
